FAERS Safety Report 5832949-7 (Version None)
Quarter: 2008Q3

REPORT INFORMATION
  Report Type: 
  Country: None (occurrence: None)
  Receive Date: 20080804
  Receipt Date: 20080725
  Transmission Date: 20090109
  Serious: Yes (Hospitalization)
  Sender: FDA-Public Use
  Company Number: US-AMGEN-US297160

PATIENT
  Age: 69 Year
  Sex: Male

DRUGS (2)
  1. SENSIPAR [Suspect]
     Indication: HYPERPARATHYROIDISM SECONDARY
     Route: 048
  2. ZYVOX [Concomitant]
     Route: 065

REACTIONS (1)
  - HYPOGLYCAEMIA [None]
